FAERS Safety Report 6456264-6 (Version None)
Quarter: 2009Q4

REPORT INFORMATION
  Report Type: 
  Country: None (occurrence: None)
  Receive Date: 20091125
  Receipt Date: 20091112
  Transmission Date: 20100525
  Serious: Yes (Hospitalization)
  Sender: FDA-Public Use
  Company Number: US-ELI_LILLY_AND_COMPANY-US200911004341

PATIENT
  Age: 65 Year
  Sex: Male

DRUGS (1)
  1. FORTEO [Suspect]
     Dosage: 20 UG, UNKNOWN
     Route: 065
     Dates: start: 20090101, end: 20090101

REACTIONS (2)
  - HOSPITALISATION [None]
  - HYPERCALCAEMIA [None]
